FAERS Safety Report 16668558 (Version 1)
Quarter: 2019Q3

REPORT INFORMATION
  Report Type: Spontaneous
  Country: US (occurrence: US)
  Receive Date: 20190804
  Receipt Date: 20190804
  Transmission Date: 20191004
  Serious: No
  Sender: FDA-Public Use
  Company Number: None

PATIENT
  Age: 32 Year
  Sex: Female
  Weight: 67.05 kg

DRUGS (4)
  1. AIMOVIG [Concomitant]
     Active Substance: ERENUMAB-AOOE
  2. BIOTIN [Concomitant]
     Active Substance: BIOTIN
  3. AIMOVIG [Suspect]
     Active Substance: ERENUMAB-AOOE
     Indication: MIGRAINE
     Dosage: ?          OTHER FREQUENCY:1 A MONTH;OTHER ROUTE:INJECTED INTO STOMACH?
     Dates: start: 20190201, end: 20190804
  4. TOPAMAX [Concomitant]
     Active Substance: TOPIRAMATE

REACTIONS (1)
  - Alopecia [None]
